FAERS Safety Report 7933867-0 (Version None)
Quarter: 2011Q4

REPORT INFORMATION
  Report Type: 
  Country: None (occurrence: None)
  Receive Date: 20111122
  Receipt Date: 20111119
  Transmission Date: 20120403
  Serious: Yes (Other)
  Sender: FDA-Public Use
  Company Number: PHHY2011NL101777

PATIENT
  Sex: Female

DRUGS (3)
  1. ZOMETA [Suspect]
     Indication: METASTASIS
     Dosage: 4 MG/5 ML 1X PER 28 DAY
     Dates: start: 20101108
  2. ZOMETA [Suspect]
     Dosage: 4 MG/5 ML 1X PER 28 DAY
     Dates: start: 20110609
  3. ZOMETA [Suspect]
     Dosage: 4 MG/5 ML 1X PER 28 DAY
     Dates: start: 20110815

REACTIONS (1)
  - PULMONARY EMBOLISM [None]
